FAERS Safety Report 6938998-X (Version None)
Quarter: 2010Q3

REPORT INFORMATION
  Report Type: 
  Country: None (occurrence: None)
  Receive Date: 20100824
  Receipt Date: 20090817
  Transmission Date: 20110219
  Serious: No
  Sender: FDA-Public Use
  Company Number: -MYLANLABS-2009S1014771

PATIENT
  Age: 54 Year
  Sex: Female

DRUGS (12)
  1. MILNACIPRAN HYDROCHLORIDE [Suspect]
     Indication: FIBROMYALGIA
     Route: 048
     Dates: start: 20090727, end: 20090727
  2. MILNACIPRAN HYDROCHLORIDE [Suspect]
     Route: 048
     Dates: start: 20090728, end: 20090729
  3. MILNACIPRAN HYDROCHLORIDE [Suspect]
     Route: 048
     Dates: start: 20090730, end: 20090802
  4. MILNACIPRAN HYDROCHLORIDE [Suspect]
     Route: 048
     Dates: start: 20090803
  5. KLONOPIN [Suspect]
     Indication: NERVOUSNESS
     Route: 048
     Dates: start: 20090728
  6. LISINOPRIL AND HYDROCHLOROTHIAZIDE [Suspect]
     Indication: BLOOD PRESSURE INCREASED
     Route: 048
     Dates: start: 20090729
  7. LISINOPRIL AND HYDROCHLOROTHIAZIDE [Suspect]
     Route: 048
     Dates: start: 20090729
  8. OESTRIOL + OESTRADIOL [Concomitant]
     Indication: HORMONE REPLACEMENT THERAPY
     Dosage: 2.5/50/1 MG
     Route: 048
  9. ALENDRONATE SODIUM [Concomitant]
     Indication: OSTEOPOROSIS
  10. EVISTA [Concomitant]
     Indication: HORMONE REPLACEMENT THERAPY
  11. PREVACID [Concomitant]
     Indication: GASTROOESOPHAGEAL REFLUX DISEASE
  12. SUPPLEMENTS [Concomitant]
     Dosage: SUPPLEMENTS, NOS

REACTIONS (2)
  - MOOD SWINGS [None]
  - RASH [None]
